FAERS Safety Report 4613457-8 (Version None)
Quarter: 2005Q1

REPORT INFORMATION
  Report Type: 
  Country: None (occurrence: None)
  Receive Date: 20050316
  Receipt Date: 20050303
  Transmission Date: 20050727
  Serious: No
  Sender: FDA-Public Use
  Company Number: 2005040683

PATIENT
  Age: 53 Year
  Sex: Male

DRUGS (6)
  1. LYRICA [Suspect]
     Indication: DIABETIC NEUROPATHY
     Dosage: (50 MG), ORAL
     Route: 048
     Dates: start: 20050117
  2. ATORVASTATIN CALCIUM [Concomitant]
  3. PERINDOPRIL           (PERINDOPRIL) [Concomitant]
  4. BENDROFLUMETHIAZIDE             (BENDROFLUMETHIAZIDE) [Concomitant]
  5. METFORMIN HCL [Concomitant]
  6. PHENOXYMETHYL PENICILLIN [Concomitant]

REACTIONS (1)
  - DIABETES MELLITUS INADEQUATE CONTROL [None]
